FAERS Safety Report 10863391 (Version 2)
Quarter: 2015Q1

REPORT INFORMATION
  Report Type: Spontaneous
  Country: BR (occurrence: BR)
  Receive Date: 20150223
  Receipt Date: 20150320
  Transmission Date: 20150721
  Serious: Yes (Hospitalization)
  Sender: FDA-Public Use
  Company Number: BR-ENDO PHARMACEUTICALS INC.-AVEE20150099

PATIENT
  Age: 24 Year
  Sex: Male

DRUGS (9)
  1. OXANDROLONE. [Concomitant]
     Active Substance: OXANDROLONE
     Indication: PRODUCT USED FOR UNKNOWN INDICATION
     Route: 065
     Dates: start: 201411, end: 201411
  2. PREDNISOLONE. [Concomitant]
     Active Substance: PREDNISOLONE
     Indication: TONSILLITIS
     Route: 065
     Dates: end: 20150201
  3. AVEED [Suspect]
     Active Substance: TESTOSTERONE UNDECANOATE
     Indication: MUSCLE BUILDING THERAPY
     Route: 030
     Dates: start: 20141204, end: 20141204
  4. NITAZOXANIDE [Concomitant]
     Active Substance: NITAZOXANIDE
     Indication: PRODUCT USED FOR UNKNOWN INDICATION
     Route: 065
  5. AVAMYS [Concomitant]
     Active Substance: FLUTICASONE FUROATE
     Indication: TONSILLITIS
     Route: 065
     Dates: start: 20150206, end: 20150210
  6. METFORMIN [Concomitant]
     Active Substance: METFORMIN HYDROCHLORIDE
     Indication: PRODUCT USED FOR UNKNOWN INDICATION
     Route: 065
     Dates: start: 20150206
  7. CLAVULIN [Concomitant]
     Active Substance: AMOXICILLIN\CLAVULANIC ACID
     Indication: TONSILLITIS
     Route: 065
     Dates: end: 20150201
  8. FINASTERIDE. [Concomitant]
     Active Substance: FINASTERIDE
     Indication: PRODUCT USED FOR UNKNOWN INDICATION
     Route: 065
     Dates: start: 2012
  9. GLIFAGE [Concomitant]
     Active Substance: METFORMIN HYDROCHLORIDE
     Indication: PRODUCT USED FOR UNKNOWN INDICATION
     Route: 065

REACTIONS (5)
  - Syncope [Recovered/Resolved]
  - Off label use [Recovered/Resolved]
  - Haematemesis [Recovered/Resolved]
  - Upper gastrointestinal haemorrhage [Recovered/Resolved]
  - Malaise [Recovered/Resolved]

NARRATIVE: CASE EVENT DATE: 20150206
